FAERS Safety Report 10218457 (Version 2)
Quarter: 2014Q2

REPORT INFORMATION
  Report Type: Report from Study
  Country: US (occurrence: US)
  Receive Date: 20140605
  Receipt Date: 20140611
  Transmission Date: 20141212
  Serious: Yes (Hospitalization, Other)
  Sender: FDA-Public Use
  Company Number: PHEH2014US011097

PATIENT
  Sex: Female

DRUGS (16)
  1. GLEEVEC [Suspect]
     Indication: LEUKAEMIA
     Dosage: 400 MG, QD
  2. SINEMET [Concomitant]
     Dosage: 100 MG, TID
  3. DEPAKOTE [Concomitant]
     Dosage: 1500 MG, QHS
  4. DEPAKOTE - SLOW RELEASE [Concomitant]
     Dosage: 500 MG, QD
  5. SIMVASTATIN [Concomitant]
     Dosage: 20 MG, QD
  6. NEURONTIN [Concomitant]
     Dosage: 300 MG, QD
  7. TOPROL XL [Concomitant]
     Dosage: 100 MG, QD
  8. PRILOSEC [Concomitant]
     Dosage: 20 MG, QD
  9. LIPITOR [Concomitant]
     Dosage: 10 MG, QD
  10. LOVENOX [Concomitant]
     Dosage: 40 MG, QD
  11. WELLBUTRIN [Concomitant]
     Dosage: 150 MG, QD
  12. EXELON [Concomitant]
     Dosage: 4.6 MG, QD
  13. TOPAMAX [Concomitant]
     Dosage: 100 MG, BID
  14. REMERON [Concomitant]
     Dosage: 15 MG, QHS
  15. ABILIFY [Concomitant]
     Dosage: 20 MG, QHS
  16. HALDOL [Concomitant]
     Dosage: 2 MG, BID

REACTIONS (1)
  - Bipolar disorder [Unknown]
